FAERS Safety Report 10192954 (Version 2)
Quarter: 2014Q2

REPORT INFORMATION
  Report Type: Not Available
  Country: FR (occurrence: FR)
  Receive Date: 20140523
  Receipt Date: 20140606
  Transmission Date: 20141212
  Serious: Yes (Hospitalization, Other)
  Sender: FDA-Public Use
  Company Number: FR-RB-067749-14

PATIENT
  Age: 28 Year
  Sex: Male

DRUGS (3)
  1. SUBUTEX [Suspect]
     Indication: DRUG DEPENDENCE
     Dosage: 16 MG AND CURRENTLY 8 MG
     Route: 042
     Dates: start: 2006
  2. HEROIN [Suspect]
     Indication: PRODUCT USED FOR UNKNOWN INDICATION
     Dosage: DOSING DETAILS UNKNOWN
     Route: 065
  3. ALCOHOL [Suspect]
     Indication: PRODUCT USED FOR UNKNOWN INDICATION
     Dosage: DOSING DETAILS UNKNOWN
     Route: 065

REACTIONS (8)
  - Skin wound [Unknown]
  - Skin ulcer [Not Recovered/Not Resolved]
  - Wound abscess [Unknown]
  - Drug abuse [Not Recovered/Not Resolved]
  - Intentional product misuse [Unknown]
  - Apathy [Unknown]
  - Abnormal behaviour [Unknown]
  - Weight decreased [Unknown]
